FAERS Safety Report 5430706-7 (Version None)
Quarter: 2007Q3

REPORT INFORMATION
  Report Type: 
  Country: None (occurrence: None)
  Receive Date: 20070830
  Receipt Date: 20061129
  Transmission Date: 20080115
  Serious: No
  Sender: FDA-Public Use
  Company Number: A0562613A

PATIENT
  Age: 65 Year
  Sex: Female

DRUGS (6)
  1. WELLBUTRIN XL [Suspect]
     Indication: DEPRESSION
     Dosage: 150MG PER DAY
     Route: 048
  2. PREMARIN [Concomitant]
  3. KLONOPIN [Concomitant]
  4. HYZAAR [Concomitant]
  5. TRICOR [Concomitant]
  6. BETA BLOCKER [Concomitant]

REACTIONS (5)
  - BRUXISM [None]
  - HEADACHE [None]
  - INSOMNIA [None]
  - NERVOUSNESS [None]
  - TREMOR [None]
